FAERS Safety Report 19947319 (Version 3)
Quarter: 2022Q1

REPORT INFORMATION
  Report Type: Report from Study
  Country: US (occurrence: US)
  Receive Date: 20211013
  Receipt Date: 20220311
  Transmission Date: 20220423
  Serious: No
  Sender: FDA-Public Use
  Company Number: US-SA-SAC20211007000723

PATIENT
  Age: 46 Year
  Sex: Female

DRUGS (3)
  1. DUPIXENT [Suspect]
     Active Substance: DUPILUMAB
     Indication: Nasal polyps
     Dosage: 300 MG
     Route: 058
  2. DUPIXENT [Suspect]
     Active Substance: DUPILUMAB
     Indication: Irritable bowel syndrome
  3. DUPIXENT [Suspect]
     Active Substance: DUPILUMAB
     Indication: Sinus polyp

REACTIONS (4)
  - Sinus congestion [Unknown]
  - Product dose omission issue [Unknown]
  - Product use in unapproved indication [Unknown]
  - Product prescribing issue [Unknown]
